FAERS Safety Report 14067927 (Version 2)
Quarter: 2017Q4

REPORT INFORMATION
  Report Type: Spontaneous
  Country: US (occurrence: US)
  Receive Date: 20171009
  Receipt Date: 20171018
  Transmission Date: 20180321
  Serious: No
  Sender: FDA-Public Use
  Company Number: US-BIOGEN-2017BI00469134

PATIENT
  Sex: Female

DRUGS (1)
  1. AVONEX [Suspect]
     Active Substance: INTERFERON BETA-1A
     Indication: MULTIPLE SCLEROSIS
     Route: 065
     Dates: start: 20000820, end: 20161207

REACTIONS (3)
  - Fatigue [Recovered/Resolved]
  - Musculoskeletal disorder [Not Recovered/Not Resolved]
  - Arthritis [Not Recovered/Not Resolved]
